FAERS Safety Report 5549516-5 (Version None)
Quarter: 2007Q4

REPORT INFORMATION
  Report Type: 
  Country: None (occurrence: None)
  Receive Date: 20071212
  Receipt Date: 20071203
  Transmission Date: 20080405
  Serious: Yes (Hospitalization)
  Sender: FDA-Public Use
  Company Number: PHRM2007FR02718

PATIENT
  Age: 57 Year
  Sex: Male

DRUGS (5)
  1. DEPAKOTE [Suspect]
     Route: 048
     Dates: start: 20060101
  2. PROZAC [Suspect]
     Indication: SCHIZOPHRENIA
     Dates: start: 20060101
  3. PROSCAR [Suspect]
     Route: 048
  4. STILNOX [Suspect]
     Indication: SCHIZOPHRENIA
     Dates: start: 20060101
  5. LEPONEX [Suspect]
     Indication: SCHIZOPHRENIA
     Route: 048
     Dates: start: 20070830, end: 20070921

REACTIONS (8)
  - ALPHA 2 GLOBULIN INCREASED [None]
  - BETA 2 MICROGLOBULIN INCREASED [None]
  - HYPOALBUMINAEMIA [None]
  - LEUKOCYTOCLASTIC VASCULITIS [None]
  - PURPURA [None]
  - RASH MACULO-PAPULAR [None]
  - SKIN ATROPHY [None]
  - VASCULITIS [None]
